FAERS Safety Report 10359946 (Version 1)
Quarter: 2014Q3

REPORT INFORMATION
  Report Type: Spontaneous
  Country: US (occurrence: US)
  Receive Date: 20140804
  Receipt Date: 20140804
  Transmission Date: 20150326
  Serious: Yes (Other)
  Sender: FDA-Public Use
  Company Number: US-PFIZER INC-2014216308

PATIENT
  Age: 44 Year
  Sex: Male
  Weight: 90.7 kg

DRUGS (3)
  1. LYRICA [Suspect]
     Active Substance: PREGABALIN
     Indication: SCIATIC NERVE INJURY
     Dosage: 100 MG, 3X/DAY
  2. TRAMADOL [Concomitant]
     Active Substance: TRAMADOL
     Dosage: 300 MG, DAILY
  3. AMITRIPTYLINE [Concomitant]
     Active Substance: AMITRIPTYLINE
     Dosage: 75 MG, DAILY

REACTIONS (1)
  - Road traffic accident [Unknown]

NARRATIVE: CASE EVENT DATE: 201304
